FAERS Safety Report 9650055 (Version 1)
Quarter: 2013Q4

REPORT INFORMATION
  Report Type: Spontaneous
  Country: US (occurrence: US)
  Receive Date: 20131028
  Receipt Date: 20131028
  Transmission Date: 20140711
  Serious: Yes (Other)
  Sender: FDA-Public Use
  Company Number: US-NAPPMUNDI-USA-2012-0096089

PATIENT
  Age: 65 Year
  Sex: Male

DRUGS (3)
  1. OXYCONTIN (NDA 22-272) [Suspect]
     Indication: BREAKTHROUGH PAIN
     Dosage: 240 MG, UNK
     Route: 048
  2. OXYCONTIN (NDA 22-272) [Suspect]
     Dosage: THREE OR FOUR 40 MG TABLETS
  3. OXYCODONE HCL TABLETS (91-490) [Suspect]
     Indication: BREAKTHROUGH PAIN
     Dosage: FIVE OR SIX 5 MG TABLETS
     Route: 048

REACTIONS (2)
  - Drug dependence [Unknown]
  - Drug abuse [Unknown]
